FAERS Safety Report 25434978 (Version 2)
Quarter: 2025Q2

REPORT INFORMATION
  Report Type: Report from Study
  Country: BR (occurrence: BR)
  Receive Date: 20250613
  Receipt Date: 20250617
  Transmission Date: 20250717
  Serious: Yes (Life-Threatening)
  Sender: JOHNSON AND JOHNSON
  Company Number: BR-JNJFOC-20250615728

PATIENT
  Age: 14 Year
  Sex: Male

DRUGS (2)
  1. INFLIXIMAB [Suspect]
     Active Substance: INFLIXIMAB
     Indication: Crohn^s disease
     Dosage: 03 AMPOULES/04 WEEKS OF 5ML
     Route: 041
     Dates: start: 202202, end: 20250610
  2. INFLIXIMAB [Suspect]
     Active Substance: INFLIXIMAB
     Route: 041
     Dates: start: 20250610

REACTIONS (2)
  - Drug ineffective [Unknown]
  - Off label use [Unknown]
